FAERS Safety Report 6787340-6 (Version None)
Quarter: 2010Q2

REPORT INFORMATION
  Report Type: 
  Country: None (occurrence: None)
  Receive Date: 20100623
  Receipt Date: 20061006
  Transmission Date: 20101027
  Serious: No
  Sender: FDA-Public Use
  Company Number: US-PFIZER INC-2006107482

PATIENT
  Age: 30 Year
  Sex: Female

DRUGS (2)
  1. VIRACEPT [Suspect]
     Indication: HIV INFECTION
     Route: 048
     Dates: start: 20060606
  2. COMBIVIR [Suspect]
     Indication: HIV INFECTION
     Dosage: 2 TABS OR CAPS
     Route: 048
     Dates: start: 20060606

REACTIONS (1)
  - ALPHA 1 FOETOPROTEIN INCREASED [None]
